FAERS Safety Report 7204637-6 (Version None)
Quarter: 2010Q4

REPORT INFORMATION
  Report Type: 
  Country: None (occurrence: None)
  Receive Date: 20101230
  Receipt Date: 20101217
  Transmission Date: 20110411
  Serious: Yes (Hospitalization)
  Sender: FDA-Public Use
  Company Number: PHHY2010FR86472

PATIENT
  Sex: Female

DRUGS (15)
  1. NISIS [Suspect]
     Dosage: 80 MG, UNK
     Route: 048
     Dates: end: 20101129
  2. BACTRIM DS [Suspect]
     Indication: URINARY TRACT INFECTION
     Dosage: 2 DF DAILY
     Route: 048
     Dates: start: 20101025, end: 20101029
  3. DEXTROPROPOXYPHENE [Suspect]
     Dosage: UNK
     Route: 048
     Dates: end: 20101129
  4. ACETAMINOPHEN [Suspect]
     Dosage: UNK
     Route: 048
     Dates: end: 20101129
  5. CITRATE DE CAFEINE [Suspect]
     Dosage: UNK
     Route: 048
     Dates: end: 20101129
  6. LERCAN [Suspect]
     Dosage: 10 MG, UNK
     Route: 048
     Dates: end: 20101129
  7. OXYBUTYNIN [Suspect]
     Dosage: UNK
     Route: 048
     Dates: end: 20101129
  8. TRIMEBUTINE [Suspect]
     Dosage: 2 DF DAILY
     Route: 048
     Dates: end: 20101129
  9. ZOLPIDEM [Suspect]
     Indication: INSOMNIA
     Dosage: 10 MG, UNK
     Dates: end: 20101129
  10. LAROXYL [Suspect]
     Dosage: 40 MG/ML
     Dates: end: 20101129
  11. AMIODARONE [Concomitant]
  12. ARANESP [Concomitant]
  13. LEVOTHYROX [Concomitant]
  14. EUPANTOL [Concomitant]
  15. DEDROGYL [Concomitant]

REACTIONS (11)
  - BACK PAIN [None]
  - DEHYDRATION [None]
  - DYSURIA [None]
  - ESCHERICHIA TEST POSITIVE [None]
  - GENERAL PHYSICAL HEALTH DETERIORATION [None]
  - HYPERKALAEMIA [None]
  - PANCYTOPENIA [None]
  - PYELONEPHRITIS [None]
  - RENAL ATROPHY [None]
  - RENAL FAILURE [None]
  - URINARY INCONTINENCE [None]
